FAERS Safety Report 8459475-3 (Version None)
Quarter: 2012Q2

REPORT INFORMATION
  Report Type: 
  Country: None (occurrence: None)
  Receive Date: 20120615
  Receipt Date: 20120525
  Transmission Date: 20120825
  Serious: Yes (Other)
  Sender: FDA-Public Use
  Company Number: 2012POI057500102

PATIENT
  Age: 66 Year
  Sex: Female

DRUGS (1)
  1. LYSTEDA [Suspect]
     Indication: CARDIAC DISORDER

REACTIONS (1)
  - GRAND MAL CONVULSION [None]
